FAERS Safety Report 19518755 (Version 1)
Quarter: 2021Q3

REPORT INFORMATION
  Report Type: Spontaneous
  Country: US (occurrence: US)
  Receive Date: 20210710
  Receipt Date: 20210710
  Transmission Date: 20211014
  Serious: No
  Sender: FDA-Public Use
  Company Number: None

PATIENT
  Age: 26 Year
  Sex: Male
  Weight: 157.5 kg

DRUGS (7)
  1. TOPCARE ACID REDUCER [Suspect]
     Active Substance: FAMOTIDINE
     Indication: EPIGASTRIC DISCOMFORT
     Dosage: ?          QUANTITY:1 TABLET(S);?
     Route: 048
     Dates: start: 20210709, end: 20210709
  2. BENADRYL [Concomitant]
     Active Substance: DIPHENHYDRAMINE HYDROCHLORIDE
  3. TOPCARE ACID REDUCER [Suspect]
     Active Substance: FAMOTIDINE
     Indication: GASTRIC PH DECREASED
     Dosage: ?          QUANTITY:1 TABLET(S);?
     Route: 048
     Dates: start: 20210709, end: 20210709
  4. VYVANSE [Concomitant]
     Active Substance: LISDEXAMFETAMINE DIMESYLATE
  5. STRATTERA [Concomitant]
     Active Substance: ATOMOXETINE HYDROCHLORIDE
  6. ZOLOFT [Concomitant]
     Active Substance: SERTRALINE HYDROCHLORIDE
  7. TRAZODONE [Concomitant]
     Active Substance: TRAZODONE HYDROCHLORIDE

REACTIONS (3)
  - Anxiety [None]
  - Dizziness [None]
  - Disturbance in attention [None]

NARRATIVE: CASE EVENT DATE: 20210709
